FAERS Safety Report 19835155 (Version 1)
Quarter: 2021Q3

REPORT INFORMATION
  Report Type: Spontaneous
  Country: CA (occurrence: CA)
  Receive Date: 20210915
  Receipt Date: 20210915
  Transmission Date: 20211014
  Serious: Yes (Hospitalization)
  Sender: FDA-Public Use
  Company Number: CA-MYLANLABS-2021M1062326

PATIENT
  Age: 34 Year
  Sex: Female

DRUGS (15)
  1. ATROPINE. [Concomitant]
     Active Substance: ATROPINE
     Indication: BRADYCARDIA
     Dosage: 0.6 MILLIGRAM
     Route: 042
  2. VASOPRESSIN. [Concomitant]
     Active Substance: VASOPRESSIN
     Indication: PRODUCT USED FOR UNKNOWN INDICATION
     Dosage: 0.033 U/MIN (2 U/H)
     Route: 065
  3. NOREPINEPHRINE. [Concomitant]
     Active Substance: NOREPINEPHRINE
     Indication: PRODUCT USED FOR UNKNOWN INDICATION
     Dosage: 0.6 MICROG KG?1 MIN?1
     Route: 065
  4. BUPIVACAINE. [Suspect]
     Active Substance: BUPIVACAINE
     Indication: SPINAL ANAESTHESIA
     Dosage: 12 MILLIGRAM
     Route: 065
  5. CARBOPROST [Suspect]
     Active Substance: CARBOPROST
     Indication: UTERINE ATONY
     Dosage: TWO DOSE
     Route: 030
  6. PHENYLEPHRINE [Suspect]
     Active Substance: PHENYLEPHRINE HYDROCHLORIDE
     Indication: PROPHYLAXIS
     Dosage: 0.5 MICROG KG?1 MIN?1, INFUSION
     Route: 065
  7. CARBETOCIN [Concomitant]
     Active Substance: CARBETOCIN
     Indication: PRODUCT USED FOR UNKNOWN INDICATION
     Dosage: 100 MICROGRAM
     Route: 042
  8. CALCIUM CHLORIDE. [Concomitant]
     Active Substance: CALCIUM CHLORIDE
     Indication: PRODUCT USED FOR UNKNOWN INDICATION
     Dosage: 2 GRAM
     Route: 065
  9. NORMAL SALINE [Concomitant]
     Active Substance: SODIUM CHLORIDE
     Indication: VEHICLE SOLUTION USE
     Dosage: 5MG MILRINONE WAS DILUTED IN SODIUM CHLORIDE TO A CONCENTRATION OF 1 MG/ML
     Route: 065
  10. EPINEPHRINE. [Suspect]
     Active Substance: EPINEPHRINE
     Indication: PULSELESS ELECTRICAL ACTIVITY
     Dosage: 1 MILLIGRAM
     Route: 042
  11. ERGOTAMINE [Suspect]
     Active Substance: CAFFEINE\ERGOTAMINE\ERGOTAMINE TARTRATE
     Indication: UTERINE ATONY
     Dosage: ONE DOSE
     Route: 030
  12. FENTANYL. [Suspect]
     Active Substance: FENTANYL
     Indication: SPINAL ANAESTHESIA
     Dosage: 20 MICROGRAM
     Route: 065
  13. MORPHINE [Suspect]
     Active Substance: MORPHINE
     Indication: SPINAL ANAESTHESIA
     Dosage: 0.1 MILLIGRAM
     Route: 065
  14. TRANEXAMIC ACID. [Concomitant]
     Active Substance: TRANEXAMIC ACID
     Indication: VAGINAL HAEMORRHAGE
     Dosage: 1 GRAM
     Route: 065
  15. FRESH FROZEN PLASMA [Concomitant]
     Active Substance: HUMAN PLASMA
     Indication: VAGINAL HAEMORRHAGE
     Dosage: 8 UNITS
     Route: 065

REACTIONS (2)
  - Drug ineffective [Unknown]
  - Maternal exposure during pregnancy [Recovered/Resolved]
